FAERS Safety Report 14554188 (Version 2)
Quarter: 2018Q1

REPORT INFORMATION
  Report Type: Spontaneous
  Country: US (occurrence: US)
  Receive Date: 20180220
  Receipt Date: 20180221
  Transmission Date: 20180509
  Serious: Yes (Other)
  Sender: FDA-Public Use
  Company Number: US-BAYER-2018-028381

PATIENT
  Age: 26 Year
  Sex: Female

DRUGS (2)
  1. MIRENA [Suspect]
     Active Substance: LEVONORGESTREL
     Dosage: 20 MCG/24HR, CONT
     Route: 015
     Dates: start: 20140301, end: 20150212
  2. MIRENA [Suspect]
     Active Substance: LEVONORGESTREL

REACTIONS (15)
  - Musculoskeletal pain [None]
  - Nausea [None]
  - Neck pain [None]
  - Intracranial pressure increased [None]
  - Dizziness [None]
  - Diplopia [None]
  - Vision blurred [None]
  - Caesarean section [None]
  - Headache [None]
  - Vomiting [None]
  - Back pain [None]
  - Blindness [None]
  - Drug ineffective [None]
  - Tinnitus [None]
  - Pregnancy with contraceptive device [None]

NARRATIVE: CASE EVENT DATE: 2014
